FAERS Safety Report 6314868-5 (Version None)
Quarter: 2009Q3

REPORT INFORMATION
  Report Type: 
  Country: None (occurrence: None)
  Receive Date: 20090817
  Receipt Date: 20090806
  Transmission Date: 20100115
  Serious: Yes (Hospitalization)
  Sender: FDA-Public Use
  Company Number: 1000006365

PATIENT
  Age: 35 Year
  Sex: Female

DRUGS (1)
  1. ESCITALOPRAM (ESCITALOPRAM OXATATE) (TABLETS) [Suspect]
     Indication: DEPRESSION
     Dosage: BUILT UP TO 20 MILLIGRAM DAILY (20 MG, 1 IN 1 D), ORAL
     Route: 048

REACTIONS (12)
  - ANAEMIA [None]
  - ANXIETY [None]
  - COGNITIVE DISORDER [None]
  - DEPRESSED MOOD [None]
  - GASTROINTESTINAL HAEMORRHAGE [None]
  - HAEMATEMESIS [None]
  - HYPERTENSION [None]
  - IRRITABILITY [None]
  - SUICIDAL IDEATION [None]
  - SUICIDE ATTEMPT [None]
  - SUSPICIOUSNESS [None]
  - THALASSAEMIA TRAIT [None]
